FAERS Safety Report 5084141-4 (Version None)
Quarter: 2006Q3

REPORT INFORMATION
  Report Type: 
  Country: None (occurrence: None)
  Receive Date: 20060816
  Receipt Date: 20060807
  Transmission Date: 20061208
  Serious: Yes (Other)
  Sender: FDA-Public Use
  Company Number: 2006-07-1459

PATIENT
  Age: 48 Year
  Sex: Female

DRUGS (2)
  1. PEG-INTRON [Suspect]
     Dates: start: 20030901, end: 20040101
  2. REBETOL [Suspect]
     Dosage: ORAL
     Route: 048
     Dates: start: 20030901, end: 20040101

REACTIONS (1)
  - NON-HODGKIN'S LYMPHOMA [None]
